FAERS Safety Report 11036597 (Version 1)
Quarter: 2015Q2

REPORT INFORMATION
  Report Type: Report from Study
  Country: US (occurrence: US)
  Receive Date: 20150416
  Receipt Date: 20150416
  Transmission Date: 20150821
  Serious: Yes (Other)
  Sender: FDA-Public Use
  Company Number: US-ROCHE-1563640

PATIENT
  Age: 51 Year
  Sex: Female
  Weight: 70.9 kg

DRUGS (6)
  1. PERTUZUMAB [Suspect]
     Active Substance: PERTUZUMAB
     Indication: HER-2 POSITIVE BREAST CANCER
     Dosage: OVER 30-60 MIN ON DAY 1?LAST DOSE ADMINISTERED PRIOR TO AE ON 09/FEB/2015
     Route: 042
     Dates: start: 20141204
  2. CARBOPLATIN. [Suspect]
     Active Substance: CARBOPLATIN
     Indication: HER-2 POSITIVE BREAST CANCER
     Dosage: AUC=6 MG/ML/MIN IV OVER 30-60MIN ON DAY 1?LAST DOSE ADMINISTERED PRIOR TO AE ON 09/FEB/2015
     Route: 042
     Dates: start: 20141204
  3. ZOLADEX [Concomitant]
     Active Substance: GOSERELIN ACETATE
     Route: 065
     Dates: start: 20141204
  4. ARIMIDEX [Concomitant]
     Active Substance: ANASTROZOLE
     Route: 065
     Dates: start: 20141204
  5. TRASTUZUMAB [Suspect]
     Active Substance: TRASTUZUMAB
     Indication: HER-2 POSITIVE BREAST CANCER
     Dosage: OVER 30-60 MIN ON DAY 1?LAST DOSE ADMINISTERED PRIOR TO AE ON 09/FEB/2015
     Route: 042
     Dates: start: 20141204
  6. DOCETAXEL. [Suspect]
     Active Substance: DOCETAXEL
     Indication: HER-2 POSITIVE BREAST CANCER
     Dosage: OVER 60 MIN ON DAY 1?LAST DOSE ADMINISTERED PRIOR TO AE ON 09/FEB/2015
     Route: 042
     Dates: start: 20141204

REACTIONS (2)
  - Anaemia [Recovered/Resolved]
  - Syncope [Recovered/Resolved]

NARRATIVE: CASE EVENT DATE: 20150212
